FAERS Safety Report 8524324-1 (Version None)
Quarter: 2012Q3

REPORT INFORMATION
  Report Type: 
  Country: None (occurrence: None)
  Receive Date: 20120720
  Receipt Date: 20120712
  Transmission Date: 20120928
  Serious: Yes (Hospitalization)
  Sender: FDA-Public Use
  Company Number: US-ASTRAZENECA-2011SE32236

PATIENT
  Age: 49 Year
  Sex: Female

DRUGS (48)
  1. NEXIUM [Suspect]
     Dosage: EVERY DAY
     Route: 048
     Dates: start: 20030101
  2. NEXIUM [Suspect]
     Route: 048
     Dates: start: 20091019
  3. HYDROCHLOROTHIAZIDE [Concomitant]
     Route: 048
     Dates: start: 20100211
  4. HYDROCODONE BITARTRATE [Concomitant]
     Indication: PAIN
     Dosage: 10 MG AND AS NEEDED
  5. CYCLOBENZAPRINE [Concomitant]
     Route: 048
     Dates: end: 20060503
  6. CLONAZEPAM [Concomitant]
     Indication: ANXIETY
     Route: 048
     Dates: start: 20060605
  7. CITALOPRAM HYDROBROMIDE [Concomitant]
     Dosage: TAKE 1/2 TABLET EVERY DAY FOR ONE WEEK,THEN ONE TABLET EVERY DAY TAKE WITH FOOD
     Route: 048
     Dates: start: 20060721
  8. NEXIUM [Suspect]
     Indication: GASTROOESOPHAGEAL REFLUX DISEASE
     Route: 048
     Dates: start: 20010101, end: 20110101
  9. HYDROCHLOROTHIAZIDE [Concomitant]
     Indication: HYPERTENSION
     Route: 048
     Dates: start: 20060503
  10. HYDROCODONE BITARTRATE [Concomitant]
     Dosage: 10/325 MG ONE TA PO DAILY
     Route: 048
     Dates: start: 20100211
  11. NEURONTIN [Concomitant]
     Route: 048
     Dates: start: 20091002
  12. METHOCARBAMOL [Concomitant]
     Route: 048
     Dates: start: 20100211
  13. NITRIPTYLINE [Concomitant]
     Dates: start: 20100211
  14. SULAR [Concomitant]
     Route: 048
     Dates: start: 20060721
  15. VAGIFEM [Concomitant]
     Dosage: INSERT ONE TABLET INTO VAGINA EVERY DAY FOR ONE WEEK THEN ONE TABLET TWO TIMES A WEEK
     Route: 067
     Dates: start: 20060815
  16. ZOLPIDEM [Concomitant]
     Indication: SLEEP DISORDER
  17. EXFORGE [Concomitant]
     Dosage: 5/320 ONE TAB PER ORAL DAILY
     Route: 048
     Dates: start: 20100211
  18. HYDROCO/ACETAMIN [Concomitant]
     Indication: BACK PAIN
     Dosage: 10MG/325MG TO BE TAKEN EVERY 12 HOURS
     Route: 048
     Dates: start: 20091006
  19. HYDROCO/ACETAMIN [Concomitant]
     Dosage: 10-325 MG
     Route: 048
     Dates: start: 20100325
  20. CRESTOR [Concomitant]
     Indication: BLOOD CHOLESTEROL INCREASED
  21. HYDROCODONE BITARTRATE [Concomitant]
     Dates: start: 20100323
  22. PHENERGAN HCL [Concomitant]
     Route: 048
     Dates: start: 20100211
  23. PREVACID [Concomitant]
     Route: 048
     Dates: start: 20091017
  24. DIOVAN [Concomitant]
     Dates: start: 20090914
  25. VYTORIN [Concomitant]
     Dosage: 10/20 MG
     Dates: start: 20090914
  26. DURADRIN [Concomitant]
     Indication: HEADACHE
     Dosage: ONE CAPSULE THREE TIMES A DAY
     Route: 048
     Dates: start: 20060626
  27. NEXIUM [Suspect]
     Route: 048
     Dates: start: 20100226
  28. HYDROCODONE BITARTRATE [Concomitant]
     Dates: start: 20090914
  29. AMITRIPTYLINE HCL [Concomitant]
     Indication: DEPRESSION
  30. METOPROLOL TARTRATE [Concomitant]
     Route: 048
     Dates: start: 20100211
  31. NEXIUM [Suspect]
     Route: 048
     Dates: start: 20100211
  32. HYDROCHLOROTHIAZIDE [Concomitant]
  33. HYDROCO/ACETAMIN [Concomitant]
     Dosage: ONE OR TWO TAB PER ORAL DAILY
     Route: 048
     Dates: start: 20100211
  34. METOPROLOL TARTRATE [Concomitant]
     Route: 048
     Dates: start: 20060721
  35. NEURONTIN [Concomitant]
     Route: 048
     Dates: start: 20100211
  36. NITROGLYCERIN [Concomitant]
     Dosage: 0.2MG PER HOUR PATCHES
     Dates: start: 20091001
  37. OMEPRAZOLE CR [Concomitant]
     Dates: start: 20010101, end: 20110101
  38. METOPROLOL TARTRATE [Concomitant]
     Route: 048
     Dates: start: 20100325
  39. CYCLOBENZAPRINE [Concomitant]
     Route: 065
     Dates: start: 20090914
  40. CYCLOBENZAPRINE [Concomitant]
     Route: 048
     Dates: start: 20090930
  41. BUTALBITAL [Concomitant]
     Dosage: PRN
     Dates: start: 20090914
  42. NEXIUM [Suspect]
     Dosage: ONE CAPSULE EVERY DAY IN THE MORNING
     Route: 048
     Dates: start: 20060721
  43. ZOLPIDEM [Concomitant]
     Dates: start: 20100309
  44. AMITRIPTYLINE HCL [Concomitant]
     Dates: start: 20090914
  45. METOPROLOL TARTRATE [Concomitant]
     Route: 048
     Dates: start: 20090914
  46. SIMVASTATIN [Concomitant]
     Route: 048
     Dates: start: 20060721
  47. SIMVASTATIN [Concomitant]
     Dosage: 10/20MG ONE TABLET PO DAILY
     Route: 048
     Dates: start: 20100211
  48. PREVACID [Concomitant]
     Dates: start: 20090914

REACTIONS (7)
  - SCIATIC NERVE INJURY [None]
  - ANKLE FRACTURE [None]
  - ARTHRITIS [None]
  - DEPRESSION [None]
  - OSTEOPOROSIS [None]
  - WALKING AID USER [None]
  - GLAUCOMA [None]
